FAERS Safety Report 9186695 (Version 1)
Quarter: 2013Q1

REPORT INFORMATION
  Report Type: Spontaneous
  Country: IN (occurrence: IN)
  Receive Date: 20130325
  Receipt Date: 20130325
  Transmission Date: 20140127
  Serious: Yes (Death, Hospitalization, Other)
  Sender: FDA-Public Use
  Company Number: IN-ROXANE LABORATORIES, INC.-2013-RO-00401RO

PATIENT
  Age: 41 Year
  Sex: Male

DRUGS (3)
  1. LITHIUM CARBONATE [Suspect]
     Indication: BIPOLAR DISORDER
     Dosage: 600 MG
  2. RISPERIDONE [Suspect]
     Dosage: 4 MG
  3. ANTI-HYPERTENSIVE [Suspect]

REACTIONS (18)
  - Death [Fatal]
  - Renal tubular disorder [Fatal]
  - Toxicity to various agents [Fatal]
  - Renal failure acute [Unknown]
  - Escherichia infection [Unknown]
  - Depressed level of consciousness [Unknown]
  - Hypotension [Unknown]
  - General physical health deterioration [None]
  - Blood pressure systolic increased [None]
  - Cerebral atrophy [None]
  - Haemoglobin decreased [None]
  - Proteinuria [None]
  - Escherichia urinary tract infection [None]
  - Renal cyst [None]
  - Pneumonia [None]
  - Focal segmental glomerulosclerosis [None]
  - Renal arteriosclerosis [None]
  - Kidney fibrosis [None]
